FAERS Safety Report 24808170 (Version 3)
Quarter: 2025Q3

REPORT INFORMATION
  Report Type: Report from Study
  Country: CA (occurrence: CA)
  Receive Date: 20250106
  Receipt Date: 20250703
  Transmission Date: 20251020
  Serious: Yes (Other)
  Sender: CSL BEHRING
  Company Number: CA-BEH-2024183322

PATIENT
  Age: 33 Year
  Sex: Male
  Weight: 132.4 kg

DRUGS (8)
  1. HIZENTRA [Suspect]
     Active Substance: HUMAN IMMUNOGLOBULIN G
     Indication: Primary immunodeficiency syndrome
     Dosage: 10 MG, QW
     Route: 065
     Dates: start: 20241023
  2. HIZENTRA [Suspect]
     Active Substance: HUMAN IMMUNOGLOBULIN G
     Dosage: 10 G, QW
     Route: 058
     Dates: start: 20241023
  3. HIZENTRA [Suspect]
     Active Substance: HUMAN IMMUNOGLOBULIN G
     Route: 065
     Dates: start: 20250625
  4. LEVOTHYROXINE [Concomitant]
     Active Substance: LEVOTHYROXINE
  5. TYLENOL [Concomitant]
     Active Substance: ACETAMINOPHEN
  6. SYMBICORT [Concomitant]
     Active Substance: BUDESONIDE\FORMOTEROL FUMARATE DIHYDRATE
  7. FLUTICASONE PROPIONATE [Concomitant]
     Active Substance: FLUTICASONE PROPIONATE
     Route: 045
  8. HEMORRHOID [Concomitant]
     Active Substance: PETROLATUM\ZINC OXIDE

REACTIONS (19)
  - Platelet count decreased [Unknown]
  - Immune thrombocytopenia [Unknown]
  - Infusion site erythema [Unknown]
  - Fatigue [Recovered/Resolved]
  - Infusion site swelling [Recovered/Resolved]
  - Fatigue [Unknown]
  - Somnolence [Unknown]
  - Fear of injection [Unknown]
  - Blood immunoglobulin G decreased [Unknown]
  - Infusion site pain [Unknown]
  - Fatigue [Unknown]
  - Discomfort [Unknown]
  - Application site rash [Unknown]
  - Skin hyperpigmentation [Unknown]
  - Haemorrhagic disorder [Unknown]
  - Therapy interrupted [Unknown]
  - Infusion site erythema [Unknown]
  - Infusion site pruritus [Unknown]
  - Wrong technique in product usage process [Unknown]

NARRATIVE: CASE EVENT DATE: 20241113
